FAERS Safety Report 8433125-4 (Version None)
Quarter: 2012Q2

REPORT INFORMATION
  Report Type: 
  Country: None (occurrence: None)
  Receive Date: 20120613
  Receipt Date: 20120607
  Transmission Date: 20120825
  Serious: Yes (Hospitalization)
  Sender: FDA-Public Use
  Company Number: FR-ROCHE-1077310

PATIENT
  Sex: Male
  Weight: 94 kg

DRUGS (4)
  1. ROFERON-A [Suspect]
     Route: 058
     Dates: start: 20100121
  2. AVASTIN [Suspect]
     Route: 042
     Dates: start: 20100121
  3. AVASTIN [Suspect]
     Indication: RENAL CELL CARCINOMA
     Route: 042
     Dates: start: 20090331, end: 20090803
  4. ROFERON-A [Suspect]
     Indication: RENAL CELL CARCINOMA
     Route: 058
     Dates: start: 20090331, end: 20090807

REACTIONS (1)
  - PYELONEPHRITIS [None]
